FAERS Safety Report 19754200 (Version 1)
Quarter: 2021Q3

REPORT INFORMATION
  Report Type: Spontaneous
  Country: US (occurrence: US)
  Receive Date: 20210827
  Receipt Date: 20210827
  Transmission Date: 20211014
  Serious: Yes (Other)
  Sender: FDA-Public Use
  Company Number: US-GLAXOSMITHKLINE-US2021GSK179519

PATIENT
  Sex: Female

DRUGS (14)
  1. ZANTAC [Suspect]
     Active Substance: RANITIDINE HYDROCHLORIDE
     Indication: GASTROOESOPHAGEAL REFLUX DISEASE
     Dosage: 75 MG, 2 PILLS TAKEN 3 TIMES DAILY
     Route: 065
     Dates: start: 199001, end: 201712
  2. RANITIDINE. [Suspect]
     Active Substance: RANITIDINE
     Indication: GASTROOESOPHAGEAL REFLUX DISEASE
     Dosage: 75 MG, 2 PILLS TAKEN 3 TIMES DAILY
     Route: 065
     Dates: start: 199001, end: 201712
  3. RANITIDINE. [Suspect]
     Active Substance: RANITIDINE
     Indication: GASTROOESOPHAGEAL REFLUX DISEASE
     Dosage: 75 MG, 2 PILLS TAKEN 3 TIMES DAILY
     Route: 065
     Dates: start: 199001, end: 201712
  4. ZANTAC [Suspect]
     Active Substance: RANITIDINE HYDROCHLORIDE
     Indication: GASTROOESOPHAGEAL REFLUX DISEASE
     Dosage: 75 MG, 2 PILLS TAKEN 3 TIMES DAILY
     Route: 065
     Dates: start: 199001, end: 201712
  5. ZANTAC [Suspect]
     Active Substance: RANITIDINE HYDROCHLORIDE
     Dosage: 150 MG, 2 PILLS TAKEN 3 TIMES DAILY
     Route: 065
     Dates: start: 199001, end: 201712
  6. RANITIDINE CAPSULE [Suspect]
     Active Substance: RANITIDINE
     Indication: GASTROOESOPHAGEAL REFLUX DISEASE
     Dosage: 75 MG, 2 PILLS TAKEN 3 TIMES DAILY
     Route: 065
     Dates: start: 199001, end: 201712
  7. RANITIDINE. [Suspect]
     Active Substance: RANITIDINE
     Dosage: 150 MG, 2 PILLS TAKEN 3 TIMES DAILY
     Route: 065
     Dates: start: 199001, end: 201712
  8. RANITIDINE CAPSULE [Suspect]
     Active Substance: RANITIDINE
     Dosage: 150 MG, 2 PILLS TAKEN 3 TIMES DAILY
     Route: 065
     Dates: start: 199001, end: 201712
  9. ZANTAC [Suspect]
     Active Substance: RANITIDINE HYDROCHLORIDE
     Dosage: 150 MG, 2 PILLS TAKEN 3 TIMES DAILY
     Route: 065
     Dates: start: 199001, end: 201712
  10. RANITIDINE. [Suspect]
     Active Substance: RANITIDINE
     Dosage: 150 MG, 2 PILLS TAKEN 3 TIMES DAILY
     Route: 065
     Dates: start: 199001, end: 201712
  11. RANITIDINE. [Suspect]
     Active Substance: RANITIDINE
     Indication: GASTROOESOPHAGEAL REFLUX DISEASE
     Dosage: 75 MG, 2 PILLS TAKEN 3 TIMES DAILY
     Route: 065
     Dates: start: 199001, end: 201712
  12. RANITIDINE. [Suspect]
     Active Substance: RANITIDINE
     Dosage: 150 MG, 2 PILLS TAKEN 3 TIMES DAILY
     Route: 065
     Dates: start: 199001, end: 201712
  13. ZANTAC [Suspect]
     Active Substance: RANITIDINE HYDROCHLORIDE
     Dosage: 150 MG, 2 PILLS TAKEN 3 TIMES DAILY
     Route: 065
     Dates: start: 199001, end: 201712
  14. ZANTAC [Suspect]
     Active Substance: RANITIDINE HYDROCHLORIDE
     Indication: GASTROOESOPHAGEAL REFLUX DISEASE
     Dosage: 75 MG, 2 PILLS TAKEN 3 TIMES DAILY
     Route: 065
     Dates: start: 199001, end: 201712

REACTIONS (1)
  - Breast cancer [Unknown]
